FAERS Safety Report 17340385 (Version 1)
Quarter: 2020Q1

REPORT INFORMATION
  Report Type: Spontaneous
  Country: US (occurrence: US)
  Receive Date: 20200114
  Receipt Date: 20200114
  Transmission Date: 20200409
  Serious: Yes (Other)
  Sender: FDA-Public Use
  Company Number: None

PATIENT
  Age: 59 Year
  Sex: Male

DRUGS (1)
  1. PSEUDOEPHEDRINE HCL 30MG FC RED TABLETS [Suspect]
     Active Substance: PSEUDOEPHEDRINE HYDROCHLORIDE
     Indication: SINUSITIS
     Dosage: 2 TABLETS
     Route: 048
     Dates: start: 20191029

REACTIONS (2)
  - Angle closure glaucoma [None]
  - Visual field defect [None]

NARRATIVE: CASE EVENT DATE: 20191029
